FAERS Safety Report 14527413 (Version 1)
Quarter: 2018Q1

REPORT INFORMATION
  Report Type: Other
  Country: IT (occurrence: IT)
  Receive Date: 20180213
  Receipt Date: 20180213
  Transmission Date: 20180509
  Serious: Yes (Hospitalization, Other)
  Sender: FDA-Public Use
  Company Number: IT-BRISTOL-MYERS SQUIBB COMPANY-BMS-2018-009632

PATIENT
  Age: 73 Year
  Sex: Male

DRUGS (2)
  1. SERACTIL [Suspect]
     Active Substance: DEXIBUPROFEN
     Indication: HEADACHE
     Dosage: 3 DF, UNK
     Route: 048
     Dates: start: 20171108, end: 20171109
  2. COUMADIN [Suspect]
     Active Substance: WARFARIN SODIUM
     Indication: ATRIAL FIBRILLATION
     Dosage: 1 DF, UNK
     Route: 048
     Dates: start: 20170101, end: 20171109

REACTIONS (2)
  - Drug interaction [Unknown]
  - Subdural haematoma [Unknown]

NARRATIVE: CASE EVENT DATE: 20171109
